FAERS Safety Report 25827823 (Version 1)
Quarter: 2025Q3

REPORT INFORMATION
  Report Type: Spontaneous
  Country: US (occurrence: US)
  Receive Date: 20250921
  Receipt Date: 20250921
  Transmission Date: 20251021
  Serious: No
  Sender: TEVA
  Company Number: US-TEVA-VS-3373344

PATIENT
  Age: 24 Year
  Sex: Male

DRUGS (2)
  1. UZEDY [Suspect]
     Active Substance: RISPERIDONE
     Indication: Product used for unknown indication
     Route: 058
  2. UZEDY [Suspect]
     Active Substance: RISPERIDONE
     Route: 058
     Dates: start: 20250814

REACTIONS (2)
  - Somnolence [Unknown]
  - Arthralgia [Unknown]

NARRATIVE: CASE EVENT DATE: 20250814
